FAERS Safety Report 9664398 (Version 3)
Quarter: 2013Q4

REPORT INFORMATION
  Report Type: Spontaneous
  Country: JP (occurrence: JP)
  Receive Date: 20131101
  Receipt Date: 20131104
  Transmission Date: 20140711
  Serious: Yes (Hospitalization, Disabling)
  Sender: FDA-Public Use
  Company Number: JP-PFIZER INC-2013277237

PATIENT
  Age: 30 Year
  Sex: Female

DRUGS (5)
  1. GABAPEN [Suspect]
     Indication: CONVULSION
     Dosage: 600 MG DAILY
     Route: 048
     Dates: start: 20120625, end: 20121022
  2. TEGRETOL [Suspect]
     Indication: CONVULSION
     Dosage: 300 MG DAILY
     Route: 048
     Dates: start: 20120605, end: 20120625
  3. E KEPPRA [Suspect]
     Indication: CONVULSION
     Dosage: 1000 MG DAILY
     Route: 048
     Dates: start: 20120605, end: 20120625
  4. EBRANTIL [Concomitant]
     Indication: DYSURIA
     Dosage: 30 MG, 1X/DAY
     Route: 048
     Dates: start: 20120621
  5. SOLDEM [Concomitant]
     Dosage: UNK
     Route: 041
     Dates: start: 20120605, end: 20120626

REACTIONS (2)
  - Visual acuity reduced [Not Recovered/Not Resolved]
  - Hyposmia [Not Recovered/Not Resolved]
